FAERS Safety Report 6349374-5 (Version None)
Quarter: 2009Q3

REPORT INFORMATION
  Report Type: 
  Country: None (occurrence: None)
  Receive Date: 20090911
  Receipt Date: 20090904
  Transmission Date: 20100115
  Serious: Yes (Other)
  Sender: FDA-Public Use
  Company Number: US-SANOFI-SYNTHELABO-A03200901656

PATIENT
  Sex: Female
  Weight: 66.7 kg

DRUGS (12)
  1. NEXIUM [Suspect]
     Indication: GASTROOESOPHAGEAL REFLUX DISEASE
     Dosage: UNK
     Route: 065
     Dates: start: 20050101, end: 20090401
  2. NEXIUM [Suspect]
     Indication: PROPHYLAXIS
     Dosage: UNK
     Route: 065
     Dates: start: 20050101, end: 20090401
  3. PLAVIX [Suspect]
     Indication: THROMBOSIS PROPHYLAXIS
     Route: 048
     Dates: start: 20081201
  4. PLAVIX [Suspect]
     Indication: IMMOBILISATION PROLONGED
     Route: 048
     Dates: start: 20081201
  5. PLAVIX [Suspect]
     Route: 048
     Dates: start: 20080701, end: 20081001
  6. PLAVIX [Suspect]
     Route: 048
     Dates: start: 20080701, end: 20081001
  7. VICODIN [Concomitant]
     Indication: PAIN
     Route: 065
     Dates: start: 20050101
  8. FLURBIPROFEN [Concomitant]
     Indication: PAIN
     Dosage: UNK
     Route: 065
     Dates: start: 20060101
  9. FLURBIPROFEN [Concomitant]
     Indication: INFLAMMATION
     Dosage: UNK
     Route: 065
     Dates: start: 20060101
  10. LIDODERM [Concomitant]
     Indication: PAIN
     Dosage: UNK
     Route: 065
     Dates: start: 20050101
  11. HYTRIN [Concomitant]
     Indication: COMPLEX REGIONAL PAIN SYNDROME
     Route: 065
     Dates: start: 20040401, end: 20090701
  12. HYTRIN [Concomitant]
     Indication: PROMOTION OF PERIPHERAL CIRCULATION
     Route: 065
     Dates: start: 20040401, end: 20090701

REACTIONS (3)
  - ANGIOPATHY [None]
  - COMPLEX REGIONAL PAIN SYNDROME [None]
  - TENDON RUPTURE [None]
